FAERS Safety Report 23555472 (Version 4)
Quarter: 2024Q2

REPORT INFORMATION
  Report Type: Spontaneous
  Country: FR (occurrence: FR)
  Receive Date: 20240222
  Receipt Date: 20240405
  Transmission Date: 20240716
  Serious: Yes (Other)
  Sender: FDA-Public Use
  Company Number: None

PATIENT
  Age: 28 Year
  Sex: Female

DRUGS (14)
  1. POLYETHYLENE GLYCOLS [Suspect]
     Active Substance: POLYETHYLENE GLYCOLS
     Indication: Electroconvulsive therapy
     Dosage: 2 DOSAGE FORM, BID,(2 DF, BID)
     Route: 048
     Dates: start: 20240124, end: 20240206
  2. OLANZAPINE [Suspect]
     Active Substance: OLANZAPINE
     Indication: Acute psychosis
     Dosage: 30 MILLIGRAM, QD
     Route: 048
     Dates: start: 20240119, end: 20240206
  3. OLANZAPINE [Suspect]
     Active Substance: OLANZAPINE
     Dosage: UNK
     Route: 048
     Dates: start: 20240119, end: 20240121
  4. OLANZAPINE [Suspect]
     Active Substance: OLANZAPINE
     Dosage: 30 MILLIGRAM, QD
     Route: 048
     Dates: start: 20240121, end: 20240206
  5. SUCCINYLCHOLINE [Suspect]
     Active Substance: SUCCINYLCHOLINE
     Indication: Electroconvulsive therapy
     Dosage: 60 MILLIGRAM (PARENTERAL)
     Route: 065
     Dates: start: 20240124, end: 20240124
  6. SUCCINYLCHOLINE [Suspect]
     Active Substance: SUCCINYLCHOLINE
     Dosage: 60 MILLIGRAM (PARENTERAL)
     Route: 065
     Dates: start: 20240126, end: 20240126
  7. SUCCINYLCHOLINE [Suspect]
     Active Substance: SUCCINYLCHOLINE
     Dosage: 60 MILLIGRAM (PARENTERAL)
     Route: 065
     Dates: start: 20240129, end: 20240129
  8. SUCCINYLCHOLINE [Suspect]
     Active Substance: SUCCINYLCHOLINE
     Dosage: 60 MILLIGRAM (PARENTERAL)
     Route: 065
     Dates: start: 20240202, end: 20240202
  9. CHLORPROMAZINE [Suspect]
     Active Substance: CHLORPROMAZINE
     Indication: Acute psychosis
     Dosage: 450 MILLIGRAM, QD
     Route: 048
     Dates: start: 20240119, end: 20240206
  10. CHLORPROMAZINE [Suspect]
     Active Substance: CHLORPROMAZINE
     Dosage: 175 MILLIGRAM, QD
     Route: 048
     Dates: start: 202401, end: 20240206
  11. DIPRIVAN [Concomitant]
     Active Substance: ISOPROPYL ALCOHOL\PROPOFOL
     Indication: Electroconvulsive therapy
     Dosage: 60 MILLIGRAM
     Route: 065
     Dates: start: 20240124, end: 20240124
  12. DIPRIVAN [Concomitant]
     Active Substance: ISOPROPYL ALCOHOL\PROPOFOL
     Dosage: 100 MILLIGRAM
     Route: 065
     Dates: start: 20240126, end: 20240126
  13. DIPRIVAN [Concomitant]
     Active Substance: ISOPROPYL ALCOHOL\PROPOFOL
     Dosage: 50 MILLIGRAM, (50 UNK)
     Route: 065
     Dates: start: 20240129, end: 20240129
  14. DIPRIVAN [Concomitant]
     Active Substance: ISOPROPYL ALCOHOL\PROPOFOL
     Dosage: 100 MILLIGRAM
     Route: 065
     Dates: start: 20240202, end: 20240202

REACTIONS (3)
  - Toxic skin eruption [Not Recovered/Not Resolved]
  - Product use in unapproved indication [Unknown]
  - Intentional product misuse [Unknown]

NARRATIVE: CASE EVENT DATE: 20240125
